FAERS Safety Report 25438858 (Version 2)
Quarter: 2025Q3

REPORT INFORMATION
  Report Type: Report from Study
  Country: US (occurrence: US)
  Receive Date: 20250616
  Receipt Date: 20250702
  Transmission Date: 20251020
  Serious: Yes (Hospitalization)
  Sender: ABBVIE
  Company Number: US-ABBVIE-6321114

PATIENT
  Age: 68 Year
  Sex: Male

DRUGS (2)
  1. RINVOQ [Suspect]
     Active Substance: UPADACITINIB
     Indication: Crohn^s disease
     Route: 048
     Dates: start: 20250527
  2. RINVOQ [Suspect]
     Active Substance: UPADACITINIB
     Indication: Crohn^s disease
     Route: 048
     Dates: start: 2025

REACTIONS (11)
  - Urinary tract infection [Recovering/Resolving]
  - Fatigue [Unknown]
  - Pain [Not Recovered/Not Resolved]
  - Hypotension [Unknown]
  - Pyrexia [Not Recovered/Not Resolved]
  - Chills [Unknown]
  - Influenza like illness [Unknown]
  - Incoherent [Unknown]
  - Vomiting [Unknown]
  - Asthenia [Unknown]
  - Headache [Unknown]

NARRATIVE: CASE EVENT DATE: 20250101
